FAERS Safety Report 13672557 (Version 2)
Quarter: 2017Q3

REPORT INFORMATION
  Report Type: Report from Study
  Country: IT (occurrence: IT)
  Receive Date: 20170621
  Receipt Date: 20170720
  Transmission Date: 20171127
  Serious: Yes (Other)
  Sender: FDA-Public Use
  Company Number: IT-ACTELION-A-CH2017-155107

PATIENT
  Age: 26 Year
  Sex: Male

DRUGS (3)
  1. ZAVESCA [Suspect]
     Active Substance: MIGLUSTAT
     Dosage: 100 MG, BID
     Route: 048
     Dates: end: 20160313
  2. ZAVESCA [Suspect]
     Active Substance: MIGLUSTAT
     Dosage: UNK
     Route: 048
     Dates: start: 20160326
  3. ZAVESCA [Suspect]
     Active Substance: MIGLUSTAT
     Indication: NIEMANN-PICK DISEASE
     Dosage: 200 MG, TID
     Route: 048
     Dates: start: 20061016

REACTIONS (2)
  - Acute kidney injury [Recovered/Resolved]
  - Hepatomegaly [Unknown]
